FAERS Safety Report 11199568 (Version 2)
Quarter: 2015Q2

REPORT INFORMATION
  Report Type: Spontaneous
  Country: US (occurrence: US)
  Receive Date: 20150618
  Receipt Date: 20150629
  Transmission Date: 20150821
  Serious: No
  Sender: FDA-Public Use
  Company Number: US-ASTRAZENECA-2015SE57129

PATIENT
  Age: 65 Year
  Sex: Female
  Weight: 75.3 kg

DRUGS (6)
  1. LEVOTHOROXIN [Concomitant]
  2. COREG [Concomitant]
     Active Substance: CARVEDILOL
  3. BYETTA [Suspect]
     Active Substance: EXENATIDE
     Indication: TYPE 2 DIABETES MELLITUS
     Route: 058
     Dates: start: 2013, end: 201505
  4. BYDUREON [Suspect]
     Active Substance: EXENATIDE
     Indication: TYPE 2 DIABETES MELLITUS
     Route: 058
     Dates: start: 20150526
  5. BYETTA [Suspect]
     Active Substance: EXENATIDE
     Indication: TYPE 2 DIABETES MELLITUS
     Route: 058
     Dates: start: 20150526
  6. CLONIDINE. [Concomitant]
     Active Substance: CLONIDINE

REACTIONS (6)
  - Nausea [Recovered/Resolved]
  - Gastrointestinal disorder [Recovered/Resolved]
  - Visual acuity reduced [Unknown]
  - Weight decreased [Unknown]
  - Product quality issue [Unknown]
  - Decreased appetite [Recovered/Resolved]

NARRATIVE: CASE EVENT DATE: 2013
